FAERS Safety Report 8416279-5 (Version None)
Quarter: 2012Q2

REPORT INFORMATION
  Report Type: 
  Country: None (occurrence: None)
  Receive Date: 20120606
  Receipt Date: 20120525
  Transmission Date: 20120825
  Serious: No
  Sender: FDA-Public Use
  Company Number: US-ELI_LILLY_AND_COMPANY-US201205009578

PATIENT
  Sex: Male

DRUGS (1)
  1. CYMBALTA [Suspect]
     Indication: DEPRESSION

REACTIONS (1)
  - HEPATIC ENZYME INCREASED [None]
